FAERS Safety Report 22045140 (Version 3)
Quarter: 2023Q2

REPORT INFORMATION
  Report Type: Report from Study
  Country: ES (occurrence: ES)
  Receive Date: 20230228
  Receipt Date: 20230403
  Transmission Date: 20230722
  Serious: Yes (Hospitalization, Other)
  Sender: FDA-Public Use
  Company Number: None

PATIENT
  Age: 80 Year
  Sex: Female

DRUGS (6)
  1. LENALIDOMIDE [Suspect]
     Active Substance: LENALIDOMIDE
     Indication: Plasma cell myeloma
     Dosage: FREQUENCY TEXT: 21 OF 28 DAYS?25 MILLIGRAM 1D (EVERY 24 HOURS)
     Route: 048
     Dates: start: 20170517, end: 20170606
  2. ALLOPURINOL [Suspect]
     Active Substance: ALLOPURINOL
     Indication: Hyperuricaemia
     Dosage: FREQUENCY TEXT: 160MG EVERY 12HRS ON SAT AND SUNDAYS
     Route: 048
     Dates: start: 20170505, end: 20170606
  3. ALLOPURINOL [Suspect]
     Active Substance: ALLOPURINOL
     Dosage: 300 MG, QD
     Route: 048
     Dates: start: 20170505, end: 20170606
  4. TRIMETHOPRIM [Suspect]
     Active Substance: TRIMETHOPRIM
     Indication: Antiviral prophylaxis
     Dosage: 160 MG, QD
     Route: 048
     Dates: start: 20170526, end: 20170605
  5. ACYCLOVIR [Suspect]
     Active Substance: ACYCLOVIR
     Indication: Antiviral prophylaxis
     Dosage: 800 MILLIGRAM, QD
     Route: 048
     Dates: start: 20170517, end: 20170606
  6. SULFAMETHOXAZOLE\TRIMETHOPRIM [Suspect]
     Active Substance: SULFAMETHOXAZOLE\TRIMETHOPRIM
     Indication: Antiviral prophylaxis
     Route: 048
     Dates: start: 20170526, end: 20170605

REACTIONS (3)
  - Hepatitis [Recovered/Resolved]
  - Renal failure [Recovered/Resolved]
  - Drug reaction with eosinophilia and systemic symptoms [Recovered/Resolved]

NARRATIVE: CASE EVENT DATE: 20170530
